FAERS Safety Report 8469557-8 (Version None)
Quarter: 2012Q2

REPORT INFORMATION
  Report Type: 
  Country: None (occurrence: None)
  Receive Date: 20120626
  Receipt Date: 20120329
  Transmission Date: 20120825
  Serious: No
  Sender: FDA-Public Use
  Company Number: US-BAUSCH-2012BL002262

PATIENT
  Age: 88 Year
  Sex: Female

DRUGS (2)
  1. GENTAMICIN SULFATE [Suspect]
     Indication: EYE INFECTION
     Route: 047
     Dates: start: 20120101, end: 20120301
  2. SOOTHE HYDRATION DROPS [Concomitant]
     Indication: DRY EYE
     Route: 047
     Dates: start: 20120101, end: 20120301

REACTIONS (1)
  - SKIN IRRITATION [None]
